FAERS Safety Report 5204986-7 (Version None)
Quarter: 2007Q1

REPORT INFORMATION
  Report Type: 
  Country: None (occurrence: None)
  Receive Date: 20070110
  Receipt Date: 20060925
  Transmission Date: 20070707
  Serious: No
  Sender: FDA-Public Use
  Company Number: US-BRISTOL-MYERS SQUIBB COMPANY-13520721

PATIENT
  Age: 40 Year
  Sex: Male
  Weight: 159 kg

DRUGS (3)
  1. ABILIFY [Suspect]
     Indication: BIPOLAR DISORDER
     Dosage: DOSE WAS 10MG DAILY WHEN ABILIFY FIRST BEGAN.
     Route: 048
  2. ZOLOFT [Concomitant]
  3. LITHIUM CARBONATE [Concomitant]

REACTIONS (6)
  - ANXIETY [None]
  - HYPERHIDROSIS [None]
  - INCREASED APPETITE [None]
  - INSOMNIA [None]
  - NERVOUSNESS [None]
  - WEIGHT INCREASED [None]
